FAERS Safety Report 8472795-1 (Version None)
Quarter: 2012Q2

REPORT INFORMATION
  Report Type: 
  Country: None (occurrence: None)
  Receive Date: 20120627
  Receipt Date: 20120621
  Transmission Date: 20120825
  Serious: Yes (Hospitalization)
  Sender: FDA-Public Use
  Company Number: PL-BAYER-2012-061461

PATIENT
  Sex: Female

DRUGS (1)
  1. MIRENA [Suspect]
     Dosage: 20 ?G/D, UNK
     Route: 015
     Dates: start: 20120301

REACTIONS (9)
  - TACHYCARDIA [None]
  - WHITE BLOOD CELL COUNT INCREASED [None]
  - DIARRHOEA [None]
  - CHEST PAIN [None]
  - ANXIETY [None]
  - FLUSHING [None]
  - DYSPNOEA [None]
  - ABDOMINAL PAIN UPPER [None]
  - NAUSEA [None]
